FAERS Safety Report 8171240-3 (Version None)
Quarter: 2012Q1

REPORT INFORMATION
  Report Type: 
  Country: None (occurrence: None)
  Receive Date: 20120228
  Receipt Date: 20120216
  Transmission Date: 20120608
  Serious: Yes (Hospitalization, Other)
  Sender: FDA-Public Use
  Company Number: NL-MEDIMMUNE-MEDI-0014983

PATIENT
  Sex: Female
  Weight: 10.03 kg

DRUGS (3)
  1. SYNAGIS [Suspect]
     Route: 030
     Dates: start: 20120109, end: 20120216
  2. AMOXICILLIN [Concomitant]
     Dates: start: 20120203, end: 20120213
  3. SYNAGIS [Suspect]
     Indication: HEART DISEASE CONGENITAL
     Route: 030
     Dates: start: 20110101, end: 20111001

REACTIONS (8)
  - INAPPROPRIATE SCHEDULE OF DRUG ADMINISTRATION [None]
  - URINARY TRACT INFECTION [None]
  - CRYING [None]
  - PYREXIA [None]
  - HIATUS HERNIA [None]
  - FEEDING DISORDER [None]
  - VOMITING [None]
  - UNEVALUABLE EVENT [None]
